FAERS Safety Report 18640474 (Version 1)
Quarter: 2020Q4

REPORT INFORMATION
  Report Type: Spontaneous
  Country: JP (occurrence: JP)
  Receive Date: 20201221
  Receipt Date: 20201221
  Transmission Date: 20210114
  Serious: Yes (Hospitalization, Other)
  Sender: FDA-Public Use
  Company Number: JP-SUN PHARMACEUTICAL INDUSTRIES LTD-2020RR-272056

PATIENT
  Age: 46 Year
  Sex: Male

DRUGS (1)
  1. IMATINIB. [Suspect]
     Active Substance: IMATINIB MESYLATE
     Indication: PERITONEAL CARCINOMA METASTATIC
     Dosage: 400 MILLIGRAM, DAILY
     Route: 048

REACTIONS (1)
  - Gastrointestinal stromal tumour [Unknown]
